FAERS Safety Report 19032729 (Version 4)
Quarter: 2021Q2

REPORT INFORMATION
  Report Type: Report from Study
  Country: JP (occurrence: JP)
  Receive Date: 20210319
  Receipt Date: 20210525
  Transmission Date: 20210717
  Serious: Yes (Hospitalization)
  Sender: FDA-Public Use
  Company Number: JP-GILEAD-2020-0500173

PATIENT
  Age: 67 Year
  Sex: Female
  Weight: 53.4 kg

DRUGS (15)
  1. EPERISONE HYDROCHLORIDE [Concomitant]
     Active Substance: EPERISONE HYDROCHLORIDE
     Indication: DIZZINESS
  2. MERISLON [Concomitant]
     Active Substance: BETAHISTINE MESILATE
     Indication: MENIERE^S DISEASE
     Dosage: UNK
     Route: 048
     Dates: start: 20201011, end: 20201017
  3. REMINYL [Concomitant]
     Active Substance: GALANTAMINE
     Indication: DEMENTIA ALZHEIMER^S TYPE
     Route: 048
     Dates: start: 20201011
  4. METHYCOBAL [Concomitant]
     Active Substance: METHYLCOBALAMIN
     Indication: MENIERE^S DISEASE
     Route: 048
     Dates: start: 20201011, end: 20201017
  5. EPERISONE HYDROCHLORIDE [Concomitant]
     Active Substance: EPERISONE HYDROCHLORIDE
     Indication: MENIERE^S DISEASE
     Dosage: UNK
     Route: 048
     Dates: start: 20201011, end: 20201017
  6. MERISLON [Concomitant]
     Active Substance: BETAHISTINE MESILATE
     Indication: DIZZINESS
  7. METHYCOBAL [Concomitant]
     Active Substance: METHYLCOBALAMIN
     Indication: DIZZINESS
  8. AVIGAN [Concomitant]
     Active Substance: FAVIPIRAVIR
     Indication: COVID-19
     Dosage: UNK
     Dates: start: 20201012, end: 20201021
  9. MAGMITT [Concomitant]
     Active Substance: MAGNESIUM OXIDE
     Indication: CONSTIPATION
     Route: 048
     Dates: start: 20201011, end: 20201017
  10. DAIKENCHUTO [Concomitant]
     Active Substance: HERBALS
     Indication: CONSTIPATION
     Dosage: UNK
     Route: 048
     Dates: start: 20201011, end: 20201017
  11. REMDESIVIR. [Suspect]
     Active Substance: REMDESIVIR
     Indication: COVID-19
     Dosage: 200 MG, QD
     Route: 042
     Dates: start: 20201017, end: 20201017
  12. ADETPHOS [Concomitant]
     Active Substance: ADENOSINE TRIPHOSPHATE
     Indication: MENIERE^S DISEASE
     Dosage: UNK
     Route: 048
     Dates: start: 20201011, end: 20201017
  13. FEBURIC [Concomitant]
     Active Substance: FEBUXOSTAT
     Indication: HYPERURICAEMIA
     Dosage: UNK
     Route: 048
     Dates: start: 20201012, end: 20201016
  14. ADETPHOS [Concomitant]
     Active Substance: ADENOSINE TRIPHOSPHATE
     Indication: DIZZINESS
  15. LIXIANA [Concomitant]
     Active Substance: EDOXABAN TOSYLATE
     Dosage: UNK
     Route: 048
     Dates: start: 20201017, end: 20201021

REACTIONS (1)
  - Hepatic function abnormal [Not Recovered/Not Resolved]

NARRATIVE: CASE EVENT DATE: 20201018
